FAERS Safety Report 11725637 (Version 3)
Quarter: 2019Q4

REPORT INFORMATION
  Report Type: Spontaneous
  Country: US (occurrence: US)
  Receive Date: 20151111
  Receipt Date: 20191216
  Transmission Date: 20200122
  Serious: No
  Sender: FDA-Public Use
  Company Number: US-UCBSA-2015027198

PATIENT
  Sex: Female

DRUGS (5)
  1. KEPPRA [Suspect]
     Active Substance: LEVETIRACETAM
     Dosage: 750 MG, 2X/DAY (BID)
  2. VIMPAT [Suspect]
     Active Substance: LACOSAMIDE
     Indication: PRODUCT USED FOR UNKNOWN INDICATION
     Dosage: 50 MG, 2X/DAY (BID)
  3. KEPPRA [Suspect]
     Active Substance: LEVETIRACETAM
     Indication: PRODUCT USED FOR UNKNOWN INDICATION
     Dosage: 2000 MG, 2X/DAY (BID)
  4. KEPPRA [Suspect]
     Active Substance: LEVETIRACETAM
     Dosage: 1000 MG, 2X/DAY (BID)
  5. FYCOMPA [Concomitant]
     Active Substance: PERAMPANEL
     Indication: PRODUCT USED FOR UNKNOWN INDICATION
     Dosage: 4 MG AT NIGHT

REACTIONS (14)
  - Drug ineffective [Unknown]
  - Anger [Unknown]
  - Insomnia [Unknown]
  - Head injury [Unknown]
  - Somnolence [Unknown]
  - Headache [Unknown]
  - Sleep disorder [Unknown]
  - Energy increased [Unknown]
  - Overdose [Unknown]
  - Feeling abnormal [Unknown]
  - Chest pain [Unknown]
  - Mood swings [Unknown]
  - Visual impairment [Unknown]
  - Weight decreased [Unknown]
